FAERS Safety Report 7895794-7 (Version None)
Quarter: 2011Q4

REPORT INFORMATION
  Report Type: 
  Country: None (occurrence: None)
  Receive Date: 20111106
  Receipt Date: 20110831
  Transmission Date: 20120403
  Serious: No
  Sender: FDA-Public Use
  Company Number: US-AMGEN-USASP2011044638

PATIENT
  Age: 62 Year
  Sex: Female

DRUGS (2)
  1. ENBREL [Suspect]
     Indication: RHEUMATOID ARTHRITIS
     Dosage: 50 MG, QWK
     Dates: start: 20090101
  2. METHOTREXATE [Concomitant]
     Dates: start: 20110830

REACTIONS (3)
  - JOINT SWELLING [None]
  - ERYTHEMA [None]
  - OEDEMA PERIPHERAL [None]
